FAERS Safety Report 10439570 (Version 1)
Quarter: 2014Q3

REPORT INFORMATION
  Report Type: Spontaneous
  Country: US (occurrence: US)
  Receive Date: 20140908
  Receipt Date: 20140908
  Transmission Date: 20150326
  Serious: No
  Sender: FDA-Public Use
  Company Number: US-BRISTOL-MYERS SQUIBB COMPANY-19982214

PATIENT
  Age: 1 Decade
  Sex: Male

DRUGS (2)
  1. GUANFACINE. [Concomitant]
     Active Substance: GUANFACINE
  2. ABILIFY [Suspect]
     Active Substance: ARIPIPRAZOLE
     Indication: AUTISM
     Dosage: PREVIOUSLY TAKING 2.5MG?CURRENTLY TAKING 5MG

REACTIONS (2)
  - Dyskinesia [Unknown]
  - Wrong technique in drug usage process [Unknown]
